FAERS Safety Report 7522153-9 (Version None)
Quarter: 2011Q2

REPORT INFORMATION
  Report Type: 
  Country: None (occurrence: None)
  Receive Date: 20110603
  Receipt Date: 20110524
  Transmission Date: 20111010
  Serious: Yes (Hospitalization)
  Sender: FDA-Public Use
  Company Number: FR-KINGPHARMUSA00001-K201100642

PATIENT
  Age: 77 Year
  Sex: Male

DRUGS (12)
  1. BISOPROLOL FUMARATE [Concomitant]
  2. LASIX [Suspect]
     Indication: HYPERTENSION
     Dosage: UNK
     Route: 048
     Dates: end: 20110121
  3. LEVOTHYROXINE SODIUM [Concomitant]
  4. ASPIRIN [Concomitant]
  5. ALTACE [Suspect]
     Dosage: 5 MG, QD
     Dates: start: 20110121, end: 20110126
  6. ROSUVASTATIN [Concomitant]
  7. COLCHICINE [Suspect]
     Indication: GOUT
     Dosage: UNK
     Route: 048
     Dates: start: 20110121, end: 20110126
  8. INSPRA [Suspect]
     Indication: CARDIAC FAILURE
     Dosage: 25 MG, QD
     Route: 048
     Dates: end: 20110126
  9. PLAVIX [Concomitant]
  10. ALTACE [Suspect]
     Indication: HYPERTENSION
     Dosage: 10 MG, QD
     Route: 048
     Dates: end: 20110120
  11. ESOMEPRAZOLE MAGNESIUM [Concomitant]
  12. ZOLPIDEM [Concomitant]

REACTIONS (8)
  - OLIGURIA [None]
  - GOUT [None]
  - DIARRHOEA [None]
  - LEUKOPENIA [None]
  - RENAL FAILURE [None]
  - DECREASED APPETITE [None]
  - ANAEMIA [None]
  - NAUSEA [None]
